FAERS Safety Report 4717298-2 (Version None)
Quarter: 2005Q3

REPORT INFORMATION
  Report Type: 
  Country: None (occurrence: None)
  Receive Date: 20050719
  Receipt Date: 20021025
  Transmission Date: 20060218
  Serious: Yes (Death, Hospitalization)
  Sender: FDA-Public Use
  Company Number: PHHO2002US08293

PATIENT
  Age: 53 Year
  Sex: Female
  Weight: 68 kg

DRUGS (18)
  1. PREDNISONE [Concomitant]
  2. CRAD001 [Suspect]
     Indication: RENAL TRANSPLANT
     Dosage: 2.25 MG, BID
     Route: 048
     Dates: start: 20020913, end: 20021117
  3. CRAD001 [Suspect]
     Dosage: 1.75 MG, BID
     Route: 048
     Dates: end: 20021212
  4. DELTASONE [Concomitant]
     Indication: RENAL TRANSPLANT
     Dosage: 12.5 MG, QD
     Route: 048
  5. DELTASONE [Concomitant]
     Dosage: 10 MG, QD
     Route: 048
  6. DELTASONE [Concomitant]
     Dosage: 15 MG, QD
     Route: 048
  7. NEORAL [Suspect]
     Indication: RENAL TRANSPLANT
     Dosage: 175 MG, BID
     Route: 048
     Dates: start: 20020925
  8. NEORAL [Suspect]
     Dosage: 150 MG, BID
     Route: 048
  9. AMLODIPINE [Concomitant]
     Indication: HYPERTENSION
  10. CLONIDINE [Concomitant]
     Indication: HYPERTENSION
  11. FUROSEMIDE [Concomitant]
     Indication: HYPERTENSION
  12. BACTRIM [Concomitant]
     Indication: ANTIBIOTIC PROPHYLAXIS
  13. NYSTATIN [Concomitant]
     Indication: PROPHYLAXIS
  14. MAALOX [Concomitant]
  15. POTASSIUM CHLORIDE [Concomitant]
  16. ASPIRIN [Concomitant]
  17. ZYRTEC [Concomitant]
  18. SINGULAIR [Concomitant]

REACTIONS (29)
  - ABDOMINAL DISTENSION [None]
  - AGITATION [None]
  - ANAEMIA [None]
  - BLOOD CREATININE INCREASED [None]
  - BODY TEMPERATURE INCREASED [None]
  - CANDIDIASIS [None]
  - CONFUSIONAL STATE [None]
  - CULTURE URINE POSITIVE [None]
  - CYTOMEGALOVIRUS INFECTION [None]
  - DIARRHOEA [None]
  - ENTEROCOCCAL INFECTION [None]
  - GASTRITIS EROSIVE [None]
  - GASTROENTERITIS [None]
  - HAEMOLYTIC URAEMIC SYNDROME [None]
  - ILEUS [None]
  - IMPAIRED HEALING [None]
  - LEUKOCYTOSIS [None]
  - NAUSEA [None]
  - OESOPHAGITIS [None]
  - PLATELET COUNT DECREASED [None]
  - SEPSIS [None]
  - SURGERY [None]
  - THROMBOTIC THROMBOCYTOPENIC PURPURA [None]
  - URINARY TRACT INFECTION [None]
  - URINE OUTPUT DECREASED [None]
  - VOMITING [None]
  - WOUND DEHISCENCE [None]
  - WOUND INFECTION [None]
  - WOUND SECRETION [None]
